FAERS Safety Report 6564993-9 (Version None)
Quarter: 2010Q1

REPORT INFORMATION
  Report Type: 
  Country: None (occurrence: None)
  Receive Date: 20100201
  Receipt Date: 20070515
  Transmission Date: 20100710
  Serious: Yes (Hospitalization, Disabling)
  Sender: FDA-Public Use
  Company Number: FR-PFIZER INC-2006138906

PATIENT
  Age: 27 Year
  Sex: Female
  Weight: 51 kg

DRUGS (4)
  1. MEDROL [Interacting]
     Dosage: 5 EVERY 1 DAYS
     Route: 048
     Dates: start: 20060607, end: 20060611
  2. CIPROFLOXACIN [Interacting]
     Indication: PYELONEPHRITIS
     Route: 048
     Dates: start: 20060601, end: 20060621
  3. DIPROSONE [Suspect]
  4. AMOXICILLIN SODIUM [Concomitant]
     Route: 048
     Dates: start: 20060621, end: 20060627

REACTIONS (5)
  - DRUG INTERACTION [None]
  - DRUG TOXICITY [None]
  - ERECTILE DYSFUNCTION [None]
  - GAIT DISTURBANCE [None]
  - MYALGIA [None]
